FAERS Safety Report 8103210-5 (Version None)
Quarter: 2012Q1

REPORT INFORMATION
  Report Type: 
  Country: None (occurrence: None)
  Receive Date: 20120201
  Receipt Date: 20120120
  Transmission Date: 20120608
  Serious: Yes (Hospitalization)
  Sender: FDA-Public Use
  Company Number: US-JNJFOC-20120110821

PATIENT
  Sex: Female

DRUGS (5)
  1. LORTAB [Suspect]
     Indication: JOINT INJURY
     Dates: start: 20111001, end: 20111001
  2. LORTAB [Suspect]
     Indication: BACK PAIN
     Dates: start: 20110101, end: 20110101
  3. LORTAB [Suspect]
     Dates: start: 20110101, end: 20110101
  4. TYLENOL SINUS [Suspect]
     Indication: PAIN
     Dates: start: 20110101, end: 20110101
  5. LORTAB [Suspect]
     Dates: start: 20111001, end: 20111001

REACTIONS (3)
  - TOXICITY TO VARIOUS AGENTS [None]
  - HEPATIC ENZYME INCREASED [None]
  - RENAL FAILURE [None]
